FAERS Safety Report 5730968-2 (Version None)
Quarter: 2008Q2

REPORT INFORMATION
  Report Type: 
  Country: None (occurrence: None)
  Receive Date: 20080505
  Receipt Date: 20080429
  Transmission Date: 20081010
  Serious: Yes (Death, Hospitalization)
  Sender: FDA-Public Use
  Company Number: 2008SP008086

PATIENT
  Age: 70 Year
  Sex: Female
  Weight: 71 kg

DRUGS (4)
  1. TEMOZOLOMIDE [Suspect]
     Indication: GLIOBLASTOMA MULTIFORME
     Dosage: 75 MG/M2; QD; PO; 100 MG/M2; QD; PO
     Route: 048
     Dates: start: 20071224, end: 20080113
  2. TEMOZOLOMIDE [Suspect]
     Indication: GLIOBLASTOMA MULTIFORME
     Dosage: 75 MG/M2; QD; PO; 100 MG/M2; QD; PO
     Route: 048
     Dates: start: 20071029
  3. BEVACIZUMAB [Suspect]
     Indication: GLIOBLASTOMA MULTIFORME
     Dosage: 10 MG/KG; IV
     Route: 042
     Dates: start: 20071224, end: 20080107
  4. BEVACIZUMAB [Suspect]
     Indication: GLIOBLASTOMA MULTIFORME
     Dosage: 10 MG/KG; IV
     Route: 042
     Dates: start: 20071029

REACTIONS (9)
  - ASTHENIA [None]
  - DEPRESSION [None]
  - LARGE INTESTINE PERFORATION [None]
  - MULTI-ORGAN FAILURE [None]
  - NEUTROPHIL COUNT DECREASED [None]
  - PERITONEAL INFECTION [None]
  - PLATELET COUNT DECREASED [None]
  - SEPSIS [None]
  - SUICIDE ATTEMPT [None]
